FAERS Safety Report 10239592 (Version 1)
Quarter: 2014Q2

REPORT INFORMATION
  Report Type: Spontaneous
  Country: US (occurrence: US)
  Receive Date: 20140616
  Receipt Date: 20140616
  Transmission Date: 20141212
  Serious: Yes (Hospitalization)
  Sender: FDA-Public Use
  Company Number: US-JNJFOC-20140609879

PATIENT
  Age: 68 Year
  Sex: Female
  Weight: 50 kg

DRUGS (7)
  1. IMBRUVICA [Suspect]
     Indication: MANTLE CELL LYMPHOMA
     Route: 065
     Dates: start: 20140604
  2. IMBRUVICA [Suspect]
     Indication: MANTLE CELL LYMPHOMA
     Route: 065
     Dates: start: 201312
  3. TRAZODONE [Concomitant]
     Route: 048
  4. BUTALBITAL/CAFFEINE/PARACETAMOL/ [Concomitant]
     Indication: HEADACHE
     Route: 048
  5. LEVOTHYROXINE SODIUM [Concomitant]
     Route: 048
  6. DOCUSATE SODIUM [Concomitant]
     Indication: CONSTIPATION
     Route: 048
  7. SENNA [Concomitant]
     Route: 048

REACTIONS (3)
  - Adverse drug reaction [Recovered/Resolved]
  - Viral pharyngitis [Recovered/Resolved]
  - Petechiae [Recovering/Resolving]
